FAERS Safety Report 17808336 (Version 1)
Quarter: 2020Q2

REPORT INFORMATION
  Report Type: Other
  Country: TW (occurrence: TW)
  Receive Date: 20200520
  Receipt Date: 20200520
  Transmission Date: 20200714
  Serious: Yes (Other)
  Sender: FDA-Public Use
  Company Number: TW-INNOGENIX, LLC-2084010

PATIENT
  Age: 53 Year
  Sex: Male

DRUGS (1)
  1. LABETALOL HYDROCHLORIDE. [Suspect]
     Active Substance: LABETALOL HYDROCHLORIDE
     Indication: HYPERTENSION
     Route: 065

REACTIONS (4)
  - Heart rate decreased [Unknown]
  - Drug ineffective [Unknown]
  - Hypertension [Unknown]
  - Generalised tonic-clonic seizure [Recovered/Resolved]
